FAERS Safety Report 11813349 (Version 2)
Quarter: 2015Q4

REPORT INFORMATION
  Report Type: Report from Study
  Country: JP (occurrence: JP)
  Receive Date: 20151209
  Receipt Date: 20151221
  Transmission Date: 20160305
  Serious: Yes (Hospitalization)
  Sender: FDA-Public Use
  Company Number: JP-ROCHE-GNE201051

PATIENT
  Age: 57 Year
  Sex: Female
  Weight: 63.06 kg

DRUGS (9)
  1. FLUTIDE DISKUS [Concomitant]
     Active Substance: FLUTICASONE PROPIONATE
     Route: 065
     Dates: start: 20021204
  2. MEDROL [Concomitant]
     Active Substance: METHYLPREDNISOLONE
     Route: 065
     Dates: start: 20020906
  3. SEREVENT DISKUS [Concomitant]
     Active Substance: SALMETEROL XINAFOATE
     Route: 065
     Dates: start: 20020703
  4. OXYGEN THERAPY [Concomitant]
     Active Substance: OXYGEN
     Route: 065
     Dates: start: 20000131
  5. OMALIZUMAB [Suspect]
     Active Substance: OMALIZUMAB
     Indication: ASTHMA
     Route: 058
     Dates: start: 20030430, end: 20030430
  6. THEO-DUR [Concomitant]
     Active Substance: THEOPHYLLINE ANHYDROUS
     Route: 065
     Dates: start: 19951025
  7. RENIVACE [Concomitant]
     Active Substance: ENALAPRIL
     Route: 065
     Dates: start: 19940228
  8. MEPTIN [Concomitant]
     Active Substance: PROCATEROL HYDROCHLORIDE
     Route: 065
     Dates: start: 19890826
  9. ONON [Concomitant]
     Active Substance: PRANLUKAST
     Route: 065
     Dates: start: 19970801

REACTIONS (1)
  - Pneumonia [Recovered/Resolved]

NARRATIVE: CASE EVENT DATE: 20030430
